FAERS Safety Report 11222548 (Version 1)
Quarter: 2015Q2

REPORT INFORMATION
  Report Type: Report from Study
  Country: US (occurrence: US)
  Receive Date: 20150626
  Receipt Date: 20150626
  Transmission Date: 20150821
  Serious: Yes (Hospitalization)
  Sender: FDA-Public Use
  Company Number: US-JNJFOC-20150614784

PATIENT
  Age: 71 Year
  Sex: Female
  Weight: 81.65 kg

DRUGS (4)
  1. REMICADE [Suspect]
     Active Substance: INFLIXIMAB
     Indication: RHEUMATOID ARTHRITIS
     Route: 042
     Dates: start: 2013
  2. VITAMIN B12 [Concomitant]
     Active Substance: CYANOCOBALAMIN
     Route: 065
  3. XANAX [Concomitant]
     Active Substance: ALPRAZOLAM
     Indication: DEPRESSION
     Route: 065
  4. METHOTREXATE [Concomitant]
     Active Substance: METHOTREXATE
     Route: 065

REACTIONS (9)
  - Sepsis [Recovered/Resolved]
  - Gastrointestinal infection [Recovered/Resolved]
  - Escherichia infection [Recovered/Resolved]
  - Kidney infection [Recovered/Resolved]
  - Diarrhoea [Not Recovered/Not Resolved]
  - Diverticulitis [Recovered/Resolved]
  - Weight decreased [Not Recovered/Not Resolved]
  - Road traffic accident [Recovered/Resolved]
  - Asthenia [Not Recovered/Not Resolved]

NARRATIVE: CASE EVENT DATE: 201412
